FAERS Safety Report 5674926-5 (Version None)
Quarter: 2008Q1

REPORT INFORMATION
  Report Type: 
  Country: None (occurrence: None)
  Receive Date: 20080320
  Receipt Date: 20080314
  Transmission Date: 20080703
  Serious: Yes (Other)
  Sender: FDA-Public Use
  Company Number: US-ELI_LILLY_AND_COMPANY-US200803003316

PATIENT
  Sex: Male
  Weight: 111.11 kg

DRUGS (2)
  1. BYETTA [Suspect]
     Dosage: 5 UG, 2/D
     Route: 058
     Dates: end: 20060101
  2. INSULIN [Concomitant]
     Dosage: UNK, UNKNOWN

REACTIONS (4)
  - LIMB CRUSHING INJURY [None]
  - NAUSEA [None]
  - ROAD TRAFFIC ACCIDENT [None]
  - WEIGHT DECREASED [None]
